FAERS Safety Report 10393599 (Version 2)
Quarter: 2014Q3

REPORT INFORMATION
  Report Type: Spontaneous
  Country: US (occurrence: US)
  Receive Date: 20140819
  Receipt Date: 20140918
  Transmission Date: 20150326
  Serious: Yes (Hospitalization)
  Sender: FDA-Public Use
  Company Number: US-BRISTOL-MYERS SQUIBB COMPANY-21288873

PATIENT
  Age: 75 Year
  Sex: Male
  Weight: 86.17 kg

DRUGS (5)
  1. PROSCAR [Concomitant]
     Active Substance: FINASTERIDE
  2. GLUCOSAMINE [Concomitant]
     Active Substance: GLUCOSAMINE
  3. CHONDROITIN [Concomitant]
     Active Substance: CHONDROITIN SULFATE (CHICKEN)
  4. TUMS [Concomitant]
     Active Substance: CALCIUM CARBONATE
  5. ELIQUIS [Suspect]
     Active Substance: APIXABAN
     Indication: CEREBROVASCULAR ACCIDENT PROPHYLAXIS
     Route: 048
     Dates: start: 201406, end: 2014

REACTIONS (2)
  - Concussion [Unknown]
  - Fall [Unknown]

NARRATIVE: CASE EVENT DATE: 20140605
